FAERS Safety Report 4780510-8 (Version None)
Quarter: 2005Q3

REPORT INFORMATION
  Report Type: 
  Country: None (occurrence: None)
  Receive Date: 20050926
  Receipt Date: 20050914
  Transmission Date: 20060218
  Serious: Yes (Hospitalization)
  Sender: FDA-Public Use
  Company Number: 2004BI000727

PATIENT
  Age: 46 Year
  Sex: Female

DRUGS (2)
  1. AVONEX [Suspect]
     Indication: MULTIPLE SCLEROSIS
     Dosage: 30 UG; QW; IM
     Route: 030
     Dates: start: 20030425, end: 20041119
  2. VANCOMYCIN [Concomitant]

REACTIONS (3)
  - BONE MARROW TRANSPLANT [None]
  - DRUG HYPERSENSITIVITY [None]
  - LEUKAEMIA [None]
